FAERS Safety Report 5656970-7 (Version None)
Quarter: 2008Q1

REPORT INFORMATION
  Report Type: 
  Country: None (occurrence: None)
  Receive Date: 20080310
  Receipt Date: 20080307
  Transmission Date: 20080703
  Serious: Yes (Other)
  Sender: FDA-Public Use
  Company Number: B0501250A

PATIENT
  Age: 1 Year
  Sex: Female

DRUGS (3)
  1. PASETOCIN [Suspect]
     Indication: UPPER RESPIRATORY TRACT INFECTION
     Dosage: 100MG THREE TIMES PER DAY
     Route: 048
     Dates: start: 20071212, end: 20071213
  2. MUCODYNE [Concomitant]
     Indication: UPPER RESPIRATORY TRACT INFECTION
     Route: 048
     Dates: start: 20071206, end: 20071213
  3. PERIACTIN [Concomitant]
     Indication: UPPER RESPIRATORY TRACT INFECTION
     Route: 048
     Dates: start: 20071206, end: 20071213

REACTIONS (3)
  - DRUG ERUPTION [None]
  - PYREXIA [None]
  - RASH [None]
